FAERS Safety Report 19770628 (Version 2)
Quarter: 2021Q3

REPORT INFORMATION
  Report Type: Spontaneous
  Country: US (occurrence: US)
  Receive Date: 20210831
  Receipt Date: 20210831
  Transmission Date: 20211014
  Serious: No
  Sender: FDA-Public Use
  Company Number: US-BAYER-2021-201309

PATIENT

DRUGS (1)
  1. CLARITIN LIQUI?GELS [Suspect]
     Active Substance: LORATADINE
     Route: 065

REACTIONS (7)
  - Fatigue [Unknown]
  - Dysgeusia [None]
  - Nausea [None]
  - Eczema [Unknown]
  - Product quality issue [None]
  - Allergy to chemicals [None]
  - Malaise [Unknown]
